FAERS Safety Report 7385312-4 (Version None)
Quarter: 2011Q1

REPORT INFORMATION
  Report Type: 
  Country: None (occurrence: None)
  Receive Date: 20110330
  Receipt Date: 20100706
  Transmission Date: 20110831
  Serious: No
  Sender: FDA-Public Use
  Company Number: US-MYLANLABS-2010S1011856

PATIENT
  Age: 33 Year
  Sex: Female
  Weight: 77.11 kg

DRUGS (3)
  1. ALLERGY MEDICATION [Concomitant]
     Dosage: OVER THE COUNTER
  2. KLONOPIN [Concomitant]
     Route: 048
  3. EMSAM [Suspect]
     Indication: DEPRESSION
     Dosage: CHANGED PATCHES QD
     Route: 062
     Dates: end: 20100616

REACTIONS (1)
  - PALPITATIONS [None]
